FAERS Safety Report 8737844 (Version 3)
Quarter: 2012Q4

REPORT INFORMATION
  Report Type: 
  Country: AT (occurrence: AT)
  Receive Date: 20120822
  Receipt Date: 20120921
  Transmission Date: 20130627
  Serious: Yes (Other)
  Sender: FDA-Public Use
  Company Number: AT-BRISTOL-MYERS SQUIBB COMPANY-16851305

PATIENT
  Sex: Female
  Weight: 68 kg

DRUGS (1)
  1. ABILIFY [Suspect]

REACTIONS (6)
  - Syncope [Unknown]
  - Weight increased [Recovering/Resolving]
  - Skin reaction [Unknown]
  - Suicidal ideation [Unknown]
  - Deformity [Unknown]
  - Overdose [Unknown]
